FAERS Safety Report 5152086-7 (Version None)
Quarter: 2006Q4

REPORT INFORMATION
  Report Type: 
  Country: None (occurrence: None)
  Receive Date: 20061113
  Receipt Date: 20061113
  Transmission Date: 20070319
  Serious: Yes (Other)
  Sender: FDA-Public Use
  Company Number: None

PATIENT
  Age: 33 Year
  Sex: Female
  Weight: 61.2356 kg

DRUGS (2)
  1. POLYETHYLENE GLYCOL 3350 [Suspect]
     Indication: IRRITABLE BOWEL SYNDROME
     Dosage: MIX 17 GRAMS (1 CAPFUL) IN 8 OZS OF WATER AND DRINK TWICE A DAY AS NEEDED
     Dates: start: 20060905
  2. BIRTH CONTROL [Concomitant]

REACTIONS (5)
  - DYSGEUSIA [None]
  - ODYNOPHAGIA [None]
  - PHARMACEUTICAL PRODUCT COMPLAINT [None]
  - STOMATITIS [None]
  - THROAT IRRITATION [None]
